FAERS Safety Report 21147284 (Version 3)
Quarter: 2022Q3

REPORT INFORMATION
  Report Type: Spontaneous
  Country: US (occurrence: US)
  Receive Date: 20220729
  Receipt Date: 20220923
  Transmission Date: 20221027
  Serious: No
  Sender: FDA-Public Use
  Company Number: US-PFIZER INC-202201010939

PATIENT
  Age: 16 Year
  Sex: Male
  Weight: 63.5 kg

DRUGS (1)
  1. GENOTROPIN [Suspect]
     Active Substance: SOMATROPIN
     Indication: Short stature
     Dosage: 1.6 MG, DAILY (1.6 MG INJECTED NIGHTLY)

REACTIONS (4)
  - Ephelides [Unknown]
  - Drug dose omission by device [Unknown]
  - Device information output issue [Unknown]
  - Device use issue [Unknown]
